FAERS Safety Report 5613466-6 (Version None)
Quarter: 2008Q1

REPORT INFORMATION
  Report Type: 
  Country: None (occurrence: None)
  Receive Date: 20080205
  Receipt Date: 20080102
  Transmission Date: 20080703
  Serious: No
  Sender: FDA-Public Use
  Company Number: US-BAYER-200810193NA

PATIENT
  Age: 43 Year
  Sex: Female
  Weight: 65 kg

DRUGS (1)
  1. YAZ [Suspect]
     Indication: ACNE
     Route: 048
     Dates: start: 20070901, end: 20071101

REACTIONS (4)
  - ACNE [None]
  - METRORRHAGIA [None]
  - MUSCLE SPASMS [None]
  - RESPIRATORY DISORDER [None]
